FAERS Safety Report 23278880 (Version 3)
Quarter: 2025Q2

REPORT INFORMATION
  Report Type: Report from Study
  Country: CA (occurrence: CA)
  Receive Date: 20231208
  Receipt Date: 20250606
  Transmission Date: 20250716
  Serious: Yes (Other)
  Sender: SANDOZ
  Company Number: CA-002147023-NVSC2020CA260297

PATIENT
  Age: 62 Year
  Sex: Male

DRUGS (2)
  1. ERELZI [Suspect]
     Active Substance: ETANERCEPT-SZZS
     Indication: Ankylosing spondylitis
     Dosage: 50 MG, QW (WEEKLY)
     Route: 058
     Dates: start: 20191023, end: 20200918
  2. TYLENOL [Concomitant]
     Active Substance: ACETAMINOPHEN
     Indication: Product used for unknown indication
     Route: 065

REACTIONS (9)
  - Immunosuppression [Unknown]
  - Surgery [Unknown]
  - Vertigo [Not Recovered/Not Resolved]
  - Sciatica [Unknown]
  - COVID-19 [Unknown]
  - Parosmia [Unknown]
  - Oropharyngeal pain [Unknown]
  - Sinusitis [Unknown]
  - Drug ineffective [Unknown]

NARRATIVE: CASE EVENT DATE: 20200918
